FAERS Safety Report 5425158-7 (Version None)
Quarter: 2007Q3

REPORT INFORMATION
  Report Type: 
  Country: None (occurrence: None)
  Receive Date: 20070824
  Receipt Date: 20070815
  Transmission Date: 20080115
  Serious: Yes (Hospitalization)
  Sender: FDA-Public Use
  Company Number: US-ROCHE-511886

PATIENT
  Age: 48 Year
  Sex: Male

DRUGS (2)
  1. PEGASYS [Suspect]
     Route: 065
     Dates: start: 20061005
  2. RIBAVIRIN [Suspect]
     Route: 065
     Dates: start: 20061005

REACTIONS (2)
  - PNEUMONIA [None]
  - THROMBOSIS [None]
